FAERS Safety Report 6122744-6 (Version None)
Quarter: 2009Q1

REPORT INFORMATION
  Report Type: 
  Country: None (occurrence: None)
  Receive Date: 20090318
  Receipt Date: 20081230
  Transmission Date: 20090719
  Serious: No
  Sender: FDA-Public Use
  Company Number: US-AMGEN-KDL326266

PATIENT
  Sex: Female

DRUGS (5)
  1. NEULASTA [Suspect]
     Indication: CHEMOTHERAPY
  2. UNSPECIFIED STEROIDS [Concomitant]
  3. CYTOXAN [Concomitant]
  4. TAXOTERE [Concomitant]
  5. PREDNISONE [Concomitant]

REACTIONS (2)
  - HEADACHE [None]
  - MALAISE [None]
